FAERS Safety Report 17949421 (Version 1)
Quarter: 2020Q2

REPORT INFORMATION
  Report Type: Spontaneous
  Country: US (occurrence: US)
  Receive Date: 20200626
  Receipt Date: 20200626
  Transmission Date: 20200714
  Serious: No
  Sender: FDA-Public Use
  Company Number: US-ADVANZ PHARMA-202006006718

PATIENT

DRUGS (3)
  1. PILOCARPINE. [Suspect]
     Active Substance: PILOCARPINE
     Indication: SJOGREN^S SYNDROME
     Dosage: 15 MG, PRN (7.5 MG AT BEDTIME, 7.5 MG AT NIGHT)
     Route: 048
  2. SERTRALINE HCL [Suspect]
     Active Substance: SERTRALINE HYDROCHLORIDE
     Indication: SJOGREN^S SYNDROME
     Dosage: 100 MG, QD (MORNING), GENERIC
  3. HYDROXYCHLOROQUINE [Suspect]
     Active Substance: HYDROXYCHLOROQUINE
     Indication: SJOGREN^S SYNDROME
     Dosage: 200 MG, BID ( 200 MG IN THE MORNING AND 200MG IN THE EVENING)
     Route: 048

REACTIONS (4)
  - Hyperhidrosis [Unknown]
  - Headache [Unknown]
  - Gastrointestinal pain [Unknown]
  - Off label use [Unknown]
